FAERS Safety Report 4483950-X (Version None)
Quarter: 2004Q4

REPORT INFORMATION
  Report Type: 
  Country: None (occurrence: None)
  Receive Date: 20041021
  Receipt Date: 20041012
  Transmission Date: 20050328
  Serious: Yes (Hospitalization)
  Sender: FDA-Public Use
  Company Number: STA-AE-04-MTX-481

PATIENT
  Age: 54 Year
  Sex: Female

DRUGS (3)
  1. METHOTREXATE [Suspect]
     Indication: RHEUMATOID ARTHRITIS
     Dosage: 22.5 MG 1X PER 1 WK, ORAL
     Route: 048
     Dates: start: 20030501
  2. PLAQUENIL [Concomitant]
  3. CELEBREX [Concomitant]

REACTIONS (1)
  - CHOLECYSTECTOMY [None]
